FAERS Safety Report 4819639-4 (Version None)
Quarter: 2005Q4

REPORT INFORMATION
  Report Type: 
  Country: None (occurrence: None)
  Receive Date: 20051102
  Receipt Date: 20051102
  Transmission Date: 20060501
  Serious: Yes (Hospitalization)
  Sender: FDA-Public Use
  Company Number: None

PATIENT
  Age: 59 Year
  Weight: 75.4 kg

DRUGS (2)
  1. HYDROCHLOROTHIAZIDE [Suspect]
     Indication: HYPERTENSION
     Dosage: 25 MG QD
     Dates: start: 20050420, end: 20050808
  2. LISINOPRIL [Suspect]
     Indication: HYPERTENSION
     Dosage: 40 MG QD

REACTIONS (3)
  - BLOOD CREATININE INCREASED [None]
  - OBSTRUCTION [None]
  - SIMILAR REACTION ON PREVIOUS EXPOSURE TO DRUG [None]
